FAERS Safety Report 12880368 (Version 2)
Quarter: 2016Q4

REPORT INFORMATION
  Report Type: Spontaneous
  Country: JP (occurrence: JP)
  Receive Date: 20161025
  Receipt Date: 20161114
  Transmission Date: 20170207
  Serious: Yes (Death, Other)
  Sender: FDA-Public Use
  Company Number: JP-ELI_LILLY_AND_COMPANY-JP201610006491

PATIENT
  Age: 65 Year
  Sex: Male

DRUGS (1)
  1. GEMZAR [Suspect]
     Active Substance: GEMCITABINE HYDROCHLORIDE
     Indication: ADENOCARCINOMA PANCREAS
     Route: 042

REACTIONS (6)
  - General physical health deterioration [Fatal]
  - Cholangitis [Unknown]
  - Intra-abdominal haemorrhage [Unknown]
  - Neutrophil count decreased [Unknown]
  - Duodenal stenosis [Unknown]
  - Device occlusion [Recovered/Resolved]
